FAERS Safety Report 6917557-9 (Version None)
Quarter: 2010Q3

REPORT INFORMATION
  Report Type: 
  Country: None (occurrence: None)
  Receive Date: 20100805
  Receipt Date: 20100715
  Transmission Date: 20110219
  Serious: Yes (Hospitalization, Other)
  Sender: FDA-Public Use
  Company Number: 20109011

PATIENT
  Sex: Male

DRUGS (1)
  1. LIORESAL [Suspect]
     Indication: MUSCLE SPASTICITY
     Dosage: 81.52 MCG, DAILY INTRATHECAL - SEE

REACTIONS (3)
  - MUSCLE SPASMS [None]
  - SEROMA [None]
  - WITHDRAWAL SYNDROME [None]
